FAERS Safety Report 6527594-4 (Version None)
Quarter: 2010Q1

REPORT INFORMATION
  Report Type: 
  Country: None (occurrence: None)
  Receive Date: 20100105
  Receipt Date: 20091224
  Transmission Date: 20100710
  Serious: Yes (Hospitalization)
  Sender: FDA-Public Use
  Company Number: PHHY2009JP58995

PATIENT
  Age: 76 Year
  Sex: Male

DRUGS (3)
  1. TEGRETOL [Suspect]
     Indication: NEUROPATHY PERIPHERAL
     Dosage: 100MG, DAILY
     Route: 048
     Dates: start: 20070406, end: 20090423
  2. TEGRETOL [Suspect]
     Dosage: 200MG, DAILY
     Route: 048
     Dates: start: 20070424, end: 20070508
  3. REMICUT [Concomitant]
     Dosage: 4MG,UNK
     Route: 048

REACTIONS (5)
  - CONJUNCTIVAL HYPERAEMIA [None]
  - GENERALISED ERYTHEMA [None]
  - ORAL MUCOSA EROSION [None]
  - STEVENS-JOHNSON SYNDROME [None]
  - TOXIC SKIN ERUPTION [None]
